FAERS Safety Report 4829864-4 (Version None)
Quarter: 2005Q4

REPORT INFORMATION
  Report Type: 
  Country: None (occurrence: None)
  Receive Date: 20051117
  Receipt Date: 20051107
  Transmission Date: 20060501
  Serious: Yes (Other)
  Sender: FDA-Public Use
  Company Number: 2005UW16840

PATIENT
  Age: 52 Year
  Sex: Female
  Weight: 59 kg

DRUGS (4)
  1. ARIMIDEX [Suspect]
     Indication: BREAST CANCER
     Route: 048
     Dates: start: 20010101
  2. ARIMIDEX [Suspect]
     Route: 048
  3. NAPROSYN [Concomitant]
  4. ASPRIN [Concomitant]
     Route: 048

REACTIONS (6)
  - ARTHRALGIA [None]
  - DIARRHOEA [None]
  - HOT FLUSH [None]
  - LYMPHOMA [None]
  - STOMACH DISCOMFORT [None]
  - VOMITING [None]
